FAERS Safety Report 6782282-4 (Version None)
Quarter: 2010Q2

REPORT INFORMATION
  Report Type: 
  Country: None (occurrence: None)
  Receive Date: 20100621
  Receipt Date: 20100611
  Transmission Date: 20101027
  Serious: Yes (Hospitalization)
  Sender: FDA-Public Use
  Company Number: US-JNJFOC-20100507008

PATIENT
  Sex: Male
  Weight: 10.43 kg

DRUGS (5)
  1. CONCENTRATED MOTRIN INFANTS DROPS [Suspect]
     Route: 048
  2. CONCENTRATED MOTRIN INFANTS DROPS [Suspect]
     Indication: PYREXIA
     Dosage: FOR 4 DAYS
     Route: 048
  3. CHILDREN'S TYLENOL PLUS MULTI-SYMPTOM COLD [Suspect]
     Indication: PYREXIA
     Dosage: FOR 4 DAYS
     Route: 065
  4. CHILDREN'S MOTRIN [Suspect]
     Route: 048
  5. CHILDREN'S MOTRIN [Suspect]
     Indication: PYREXIA
     Dosage: FOR 4 DAYS
     Route: 048

REACTIONS (7)
  - DRUG INEFFECTIVE [None]
  - FEBRILE CONVULSION [None]
  - OTITIS MEDIA [None]
  - PRODUCT QUALITY ISSUE [None]
  - PYREXIA [None]
  - UPPER RESPIRATORY TRACT INFECTION [None]
  - WRONG DRUG ADMINISTERED [None]
